FAERS Safety Report 6089898-1 (Version None)
Quarter: 2009Q1

REPORT INFORMATION
  Report Type: 
  Country: None (occurrence: None)
  Receive Date: 20090224
  Receipt Date: 20081218
  Transmission Date: 20090719
  Serious: No
  Sender: FDA-Public Use
  Company Number: US-ABBOTT-08P-163-0489342-00

PATIENT
  Sex: Female

DRUGS (11)
  1. NIACIN ER/SIMVASTATIN [Suspect]
     Indication: BLOOD CHOLESTEROL INCREASED
     Dates: start: 20071101, end: 20080401
  2. NIACIN ER/SIMVASTATIN [Suspect]
     Dosage: 500/20 MG
     Dates: start: 20081111
  3. ACETYLSALICYLIC ACID SRT [Concomitant]
     Indication: DRUG USE FOR UNKNOWN INDICATION
  4. VICODIN [Concomitant]
     Indication: DRUG USE FOR UNKNOWN INDICATION
  5. DULOXETINE HYDROCHLORIDE [Concomitant]
     Indication: DRUG USE FOR UNKNOWN INDICATION
  6. ALPRAZOLAM [Concomitant]
     Indication: DRUG USE FOR UNKNOWN INDICATION
  7. AMITRIPTYLINE [Concomitant]
     Indication: DRUG USE FOR UNKNOWN INDICATION
  8. DICYCLOMINE HCL [Concomitant]
     Indication: DRUG USE FOR UNKNOWN INDICATION
  9. TOPRAL [Concomitant]
     Indication: DRUG USE FOR UNKNOWN INDICATION
  10. ESTRATEST [Concomitant]
     Indication: DRUG USE FOR UNKNOWN INDICATION
     Dates: start: 20080101
  11. NITROGLYCERIN [Concomitant]
     Indication: DRUG USE FOR UNKNOWN INDICATION
     Dosage: AS NEEDED
     Route: 060

REACTIONS (4)
  - ABDOMINAL PAIN UPPER [None]
  - CHEST PAIN [None]
  - FLUSHING [None]
  - LIVER FUNCTION TEST ABNORMAL [None]
